FAERS Safety Report 9233715 (Version 1)
Quarter: 2013Q2

REPORT INFORMATION
  Report Type: Spontaneous
  Country: US (occurrence: US)
  Receive Date: 20130416
  Receipt Date: 20130416
  Transmission Date: 20140414
  Serious: No
  Sender: FDA-Public Use
  Company Number: US-BANPHARM-20130949

PATIENT
  Age: 66 Year
  Sex: Female
  Weight: 90.72 kg

DRUGS (1)
  1. ALEVE LIQUID GELS 220MG [Suspect]
     Indication: PAIN
     Route: 048
     Dates: end: 20120424

REACTIONS (3)
  - Swelling face [Not Recovered/Not Resolved]
  - Eye swelling [Recovered/Resolved]
  - Erythema [Recovered/Resolved]
